FAERS Safety Report 10082247 (Version 2)
Quarter: 2014Q2

REPORT INFORMATION
  Report Type: Report from Study
  Country: FR (occurrence: FR)
  Receive Date: 20140416
  Receipt Date: 20140423
  Transmission Date: 20141212
  Serious: Yes (Hospitalization, Other)
  Sender: FDA-Public Use
  Company Number: PHHY2014FR045337

PATIENT
  Age: 74 Year
  Sex: Male

DRUGS (2)
  1. MYCOPHENOLIC ACID [Suspect]
     Indication: TRANSPLANT REJECTION
     Dosage: 720 MG, DAILY
     Route: 048
     Dates: start: 20130924, end: 20131113
  2. CERTICAN [Suspect]
     Indication: TRANSPLANT REJECTION
     Dosage: 1 MG, UNK

REACTIONS (6)
  - Lung disorder [Recovered/Resolved with Sequelae]
  - Hypoxia [Recovered/Resolved with Sequelae]
  - Cardiac failure [Unknown]
  - Dyspnoea [Recovered/Resolved]
  - Pneumocystis jirovecii pneumonia [Unknown]
  - Sepsis [Unknown]
